FAERS Safety Report 5312588-7 (Version None)
Quarter: 2007Q2

REPORT INFORMATION
  Report Type: 
  Country: None (occurrence: None)
  Receive Date: 20070430
  Receipt Date: 20070222
  Transmission Date: 20071010
  Serious: No
  Sender: FDA-Public Use
  Company Number: 2007UW03443

PATIENT
  Age: 24 Year
  Sex: Female

DRUGS (4)
  1. NEXIUM [Suspect]
     Indication: GASTROOESOPHAGEAL REFLUX DISEASE
     Route: 048
     Dates: start: 20060101, end: 20070201
  2. ATENOLOL [Concomitant]
     Route: 048
  3. FLORANE [Concomitant]
  4. PROZAC [Concomitant]

REACTIONS (4)
  - DIZZINESS [None]
  - DYSPEPSIA [None]
  - FEELING HOT AND COLD [None]
  - NAUSEA [None]
